FAERS Safety Report 5794716-2 (Version None)
Quarter: 2008Q2

REPORT INFORMATION
  Report Type: 
  Country: None (occurrence: None)
  Receive Date: 20080630
  Receipt Date: 20080627
  Transmission Date: 20081010
  Serious: Yes (Hospitalization)
  Sender: FDA-Public Use
  Company Number: A0735055A

PATIENT
  Age: 48 Year
  Sex: Female

DRUGS (2)
  1. ALLI [Suspect]
     Dosage: 1CAP PER DAY
     Route: 048
     Dates: end: 20080606
  2. NONE [Concomitant]

REACTIONS (12)
  - ABDOMINAL PAIN UPPER [None]
  - ANXIETY [None]
  - APPENDICITIS PERFORATED [None]
  - BACK PAIN [None]
  - DEHYDRATION [None]
  - DYSPNOEA [None]
  - INCISION SITE PAIN [None]
  - LUNG INFECTION [None]
  - MALAISE [None]
  - NON-CARDIAC CHEST PAIN [None]
  - PAIN [None]
  - VOMITING [None]
